FAERS Safety Report 6920748-4 (Version None)
Quarter: 2010Q3

REPORT INFORMATION
  Report Type: 
  Country: None (occurrence: None)
  Receive Date: 20100804
  Receipt Date: 20100804
  Transmission Date: 20110219
  Serious: No
  Sender: FDA-Public Use
  Company Number: 2010-1622

PATIENT
  Age: 64 Year
  Sex: Male
  Weight: 86.2 kg

DRUGS (8)
  1. SOMATULINE DEPOT [Suspect]
     Indication: ACROMEGALY
     Dosage: 90MG (90 MG, 1 IN 4 WK), SUBCUTANEOUS
     Route: 058
     Dates: start: 20100326
  2. CARBAMAZEPINE [Concomitant]
  3. CO Q-10 (UBIDECARENON-E) [Concomitant]
  4. FISH OIL (FISH OIL) [Concomitant]
  5. MULTIVITAMIN (MULTIVITAMIN /00831701/) [Concomitant]
  6. NIACIN [Concomitant]
  7. SPIRONOLACTONE WITH HYDROCHLOROTHIAZIDE (ALDACTAZIDE A) [Concomitant]
  8. VITAMIN D [Concomitant]

REACTIONS (6)
  - INJECTION SITE DISCOLOURATION [None]
  - INJECTION SITE ERYTHEMA [None]
  - INJECTION SITE INFLAMMATION [None]
  - INJECTION SITE NODULE [None]
  - INJECTION SITE PRURITUS [None]
  - RASH [None]
